FAERS Safety Report 12789742 (Version 1)
Quarter: 2016Q3

REPORT INFORMATION
  Report Type: Spontaneous
  Country: BR (occurrence: BR)
  Receive Date: 20160928
  Receipt Date: 20160928
  Transmission Date: 20161109
  Serious: Yes (Other)
  Sender: FDA-Public Use
  Company Number: BR-ELI_LILLY_AND_COMPANY-BR201609006537

PATIENT
  Sex: Female

DRUGS (1)
  1. TADALAFILA [Suspect]
     Active Substance: TADALAFIL
     Indication: POOR PERIPHERAL CIRCULATION
     Dosage: 20 MG, QD
     Route: 048
     Dates: start: 20160830

REACTIONS (5)
  - Balance disorder [Unknown]
  - Ocular discomfort [Unknown]
  - Ear discomfort [Unknown]
  - Off label use [Unknown]
  - Eye haemorrhage [Unknown]
